FAERS Safety Report 16945822 (Version 2)
Quarter: 2019Q4

REPORT INFORMATION
  Report Type: Report from Study
  Country: US (occurrence: US)
  Receive Date: 20191022
  Receipt Date: 20191101
  Transmission Date: 20200122
  Serious: Yes (Death, Life-Threatening, Hospitalization, Other)
  Sender: FDA-Public Use
  Company Number: US-RETROPHIN, INC.-2019RTN00109

PATIENT
  Age: 5 Month
  Sex: Male
  Weight: 6.18 kg

DRUGS (12)
  1. LEVETIRACETAM. [Concomitant]
     Active Substance: LEVETIRACETAM
     Dosage: 80 MG, EVERY 8 HOURS
     Route: 048
  2. LACTULOSE. [Concomitant]
     Active Substance: LACTULOSE
     Dosage: 1.533 G, 3X/DAY
     Route: 048
  3. MIDAZOLAM [Concomitant]
     Active Substance: MIDAZOLAM HYDROCHLORIDE
     Dosage: 0.25 MG/KG, EVERY 6 HOURS AS NEEDED
     Route: 048
  4. FAMOTIDINE. [Concomitant]
     Active Substance: FAMOTIDINE
     Dosage: 0.5 MG/KG, 2X/DAY
     Route: 048
  5. PHENOBARBITAL. [Concomitant]
     Active Substance: PHENOBARBITAL
     Dosage: 22.75 MG, 3X/DAY
     Route: 048
  6. CHOLIC ACID [Suspect]
     Active Substance: CHOLIC ACID
     Indication: CEREBROHEPATORENAL SYNDROME
     Dosage: 25 MG, 2X/DAY
     Route: 048
     Dates: start: 20190505, end: 2019
  7. CHOLIC ACID [Suspect]
     Active Substance: CHOLIC ACID
     Dosage: 50 MG, 1X/DAY
     Route: 048
     Dates: start: 20190919
  8. ARTIFICIAL TEARS [Concomitant]
     Active Substance: GLYCERIN\HYPROMELLOSES\POLYETHYLENE GLYCOL 400
     Dosage: UNK, FOUR TIMES DAILY TO BOTH EYES AS NEEDED
     Route: 047
  9. PHENOBARBITAL. [Concomitant]
     Active Substance: PHENOBARBITAL
     Dosage: 22.75 MG, 3X/DAY
     Route: 048
  10. ELECARE 26 [Concomitant]
  11. LEVETIRACETAM. [Concomitant]
     Active Substance: LEVETIRACETAM
     Dosage: 80 MG, EVERY 8 HOURS
     Route: 048
  12. MORPHINE [Concomitant]
     Active Substance: MORPHINE
     Dosage: 0.05 MG/KG, EVERY 4 HOURS AS NEEDED
     Route: 048

REACTIONS (16)
  - Aspartate aminotransferase increased [Not Recovered/Not Resolved]
  - Alanine aminotransferase increased [Not Recovered/Not Resolved]
  - Hypophosphataemia [Recovered/Resolved]
  - Acute respiratory failure [Fatal]
  - Cardio-respiratory arrest [Recovered/Resolved with Sequelae]
  - Proteinuria [Unknown]
  - Blood albumin decreased [Recovered/Resolved]
  - Pneumonia staphylococcal [Not Recovered/Not Resolved]
  - Hyperammonaemia [Unknown]
  - Enterovirus infection [Fatal]
  - Pneumonia pseudomonal [Not Recovered/Not Resolved]
  - Lactic acidosis [Not Recovered/Not Resolved]
  - Blood glucose decreased [Recovered/Resolved]
  - Rhinovirus infection [Fatal]
  - Metabolic alkalosis [Recovered/Resolved]
  - Multiple organ dysfunction syndrome [Not Recovered/Not Resolved]

NARRATIVE: CASE EVENT DATE: 201909
